FAERS Safety Report 11976065 (Version 1)
Quarter: 2016Q1

REPORT INFORMATION
  Report Type: Report from Study
  Country: JP (occurrence: JP)
  Receive Date: 20160129
  Receipt Date: 20160129
  Transmission Date: 20160526
  Serious: Yes (Hospitalization)
  Sender: FDA-Public Use
  Company Number: JP-VIFOR (INTERNATIONAL) INC.-VIT-2016-00166

PATIENT
  Age: 79 Year
  Sex: Male

DRUGS (11)
  1. KREMEZIN [Concomitant]
     Active Substance: ACTIVATED CHARCOAL
     Indication: NEPHROSCLEROSIS
  2. LASIX [Concomitant]
     Active Substance: FUROSEMIDE
     Dates: end: 20130619
  3. FEBURIC [Concomitant]
     Active Substance: FEBUXOSTAT
     Dates: start: 20130523
  4. MIRCERA [Suspect]
     Active Substance: METHOXY POLYETHYLENE GLYCOL-EPOETIN BETA
     Route: 058
     Dates: start: 20130226, end: 20130912
  5. OLMETEC [Concomitant]
     Active Substance: OLMESARTAN MEDOXOMIL
  6. PLETAAL [Concomitant]
     Active Substance: CILOSTAZOL
  7. MIRCERA [Suspect]
     Active Substance: METHOXY POLYETHYLENE GLYCOL-EPOETIN BETA
     Indication: NEPHROGENIC ANAEMIA
     Route: 058
     Dates: start: 20130117, end: 20130225
  8. WARFARIN [Concomitant]
     Active Substance: WARFARIN
  9. ALLORIN [Concomitant]
     Dates: start: 20130522
  10. MIRCERA [Suspect]
     Active Substance: METHOXY POLYETHYLENE GLYCOL-EPOETIN BETA
     Route: 058
     Dates: start: 20131010
  11. ARGAMATE [Concomitant]
     Active Substance: CALCIUM POLYSTYRENE SULFONATE
     Indication: NEPHROSCLEROSIS

REACTIONS (8)
  - Pyrexia [Unknown]
  - Blood albumin decreased [Unknown]
  - Hypertension [Unknown]
  - Decreased appetite [Unknown]
  - Hypoxia [Unknown]
  - Inguinal hernia [Recovered/Resolved]
  - Gait disturbance [Unknown]
  - Pneumonia bacterial [Recovering/Resolving]

NARRATIVE: CASE EVENT DATE: 201302
